FAERS Safety Report 23257967 (Version 1)
Quarter: 2023Q4

REPORT INFORMATION
  Report Type: Spontaneous
  Country: US (occurrence: US)
  Receive Date: 20231204
  Receipt Date: 20231204
  Transmission Date: 20240109
  Serious: Yes (Hospitalization)
  Sender: FDA-Public Use
  Company Number: US-BEXIMCO-2023BEX00079

PATIENT
  Age: 68 Year
  Sex: Female

DRUGS (6)
  1. BACLOFEN [Suspect]
     Active Substance: BACLOFEN
     Dosage: 5 MG, 3X/DAY
  2. GABAPENTIN [Suspect]
     Active Substance: GABAPENTIN
     Dosage: 300 MG, 2X/DAY
  3. CARVEDILOL [Concomitant]
     Active Substance: CARVEDILOL
  4. DOXAZOSIN [Concomitant]
     Active Substance: DOXAZOSIN MESYLATE
  5. HYDRALAZINE [Concomitant]
     Active Substance: HYDRALAZINE HYDROCHLORIDE
  6. NIFEDIPINE [Concomitant]
     Active Substance: NIFEDIPINE

REACTIONS (4)
  - Fall [Unknown]
  - Mental status changes [Recovering/Resolving]
  - Subdural haematoma [Unknown]
  - Toxicity to various agents [Unknown]
